FAERS Safety Report 5773666-1 (Version None)
Quarter: 2008Q2

REPORT INFORMATION
  Report Type: 
  Country: None (occurrence: None)
  Receive Date: 20080616
  Receipt Date: 20080609
  Transmission Date: 20081010
  Serious: Yes (Other)
  Sender: FDA-Public Use
  Company Number: FR-BRISTOL-MYERS SQUIBB COMPANY-14226294

PATIENT
  Sex: Female

DRUGS (1)
  1. PRAVASTATIN SODIUM [Suspect]
     Route: 048
     Dates: start: 20030101

REACTIONS (1)
  - ROTATOR CUFF SYNDROME [None]
